FAERS Safety Report 7242698-9 (Version None)
Quarter: 2011Q1

REPORT INFORMATION
  Report Type: 
  Country: None (occurrence: None)
  Receive Date: 20110114
  Receipt Date: 20110107
  Transmission Date: 20110831
  Serious: Yes (Hospitalization)
  Sender: FDA-Public Use
  Company Number: 2010SP057321

PATIENT
  Age: 56 Year
  Sex: Male
  Weight: 77.8 kg

DRUGS (6)
  1. LOXONIN (LOXOPROFEN SODIUM HYDRATE) (LOXOPROFEN SODIUM) [Suspect]
     Indication: PROPHYLAXIS
     Dosage: 60 MG;BID;PO
     Route: 048
     Dates: start: 20101005, end: 20101019
  2. LOXONIN (LOXOPROFEN SODIUM HYDRATE) (LOXOPROFEN SODIUM) [Suspect]
     Indication: PYREXIA
     Dosage: 60 MG;BID;PO
     Route: 048
     Dates: start: 20101005, end: 20101019
  3. GASTER D (FAMOTIDINE) [Suspect]
     Indication: PROPHYLAXIS AGAINST GASTROINTESTINAL ULCER
     Dosage: 20 MG;BID;PO
     Route: 048
     Dates: start: 20101005, end: 20101108
  4. PEG-INTRON [Suspect]
     Indication: HEPATITIS C
     Dosage: 120 MCG;QW;SC, 100 MCG;QW;SC
     Route: 058
     Dates: start: 20101005, end: 20101012
  5. PEG-INTRON [Suspect]
     Indication: HEPATITIS C
     Dosage: 120 MCG;QW;SC, 100 MCG;QW;SC
     Route: 058
     Dates: start: 20101019, end: 20101221
  6. REBETOL [Suspect]
     Indication: HEPATITIS C
     Dosage: 800 MG;QD;PO
     Route: 048
     Dates: start: 20101005, end: 20101221

REACTIONS (3)
  - PLATELET COUNT DECREASED [None]
  - BLOOD BILIRUBIN INCREASED [None]
  - JAUNDICE [None]
